FAERS Safety Report 5041332-6 (Version None)
Quarter: 2006Q2

REPORT INFORMATION
  Report Type: 
  Country: None (occurrence: None)
  Receive Date: 20060626
  Receipt Date: 20060608
  Transmission Date: 20061013
  Serious: Yes (Hospitalization)
  Sender: FDA-Public Use
  Company Number: 430002K06USA

PATIENT
  Age: 42 Year
  Sex: Female

DRUGS (4)
  1. NOVANTRONE [Suspect]
     Indication: MULTIPLE SCLEROSIS
     Dosage: 20 MG, ONCE, INTRAVENOUS
     Route: 042
     Dates: start: 20051228, end: 20051228
  2. BACLOFEN [Concomitant]
  3. DITROPAN XL (OXYBUTYNIN /00538901/) [Concomitant]
  4. REBIF [Concomitant]

REACTIONS (7)
  - ASTHENIA [None]
  - CONDITION AGGRAVATED [None]
  - CONSTIPATION [None]
  - FEBRILE NEUTROPENIA [None]
  - INFECTION [None]
  - SECONDARY PROGRESSIVE MULTIPLE SCLEROSIS [None]
  - WHITE BLOOD CELL COUNT DECREASED [None]
